FAERS Safety Report 8616359 (Version 4)
Quarter: 2013Q2

REPORT INFORMATION
  Report Type: Spontaneous
  Country: BR (occurrence: BR)
  Receive Date: 20120614
  Receipt Date: 20130403
  Transmission Date: 20140414
  Serious: Yes (Hospitalization)
  Sender: FDA-Public Use
  Company Number: BR-B.I. PHARMACEUTICALS,INC./RIDGEFIELD-2012-BR-00640BR

PATIENT
  Age: 65 Year
  Sex: Female

DRUGS (6)
  1. TRAYENTA [Suspect]
     Indication: TYPE 2 DIABETES MELLITUS
     Dosage: 5 MG
     Route: 048
  2. SYNTHROID [Concomitant]
  3. SELOZOK [Concomitant]
  4. MICARDIS [Concomitant]
  5. ATORVASTATIN [Concomitant]
  6. BUFFERIN CARDIO [Concomitant]

REACTIONS (4)
  - Pancreatitis [Recovered/Resolved]
  - Abdominal pain [Recovered/Resolved]
  - Vomiting [Recovered/Resolved]
  - Nausea [Recovered/Resolved]
